FAERS Safety Report 9209061 (Version 2)
Quarter: 2013Q2

REPORT INFORMATION
  Report Type: Spontaneous
  Country: US (occurrence: US)
  Receive Date: 20130404
  Receipt Date: 20130426
  Transmission Date: 20140414
  Serious: Yes (Hospitalization)
  Sender: FDA-Public Use
  Company Number: US-SANOFI-AVENTIS-2013SA034573

PATIENT
  Age: 66 Year
  Sex: Male
  Weight: 72.57 kg

DRUGS (21)
  1. LOVENOX [Suspect]
     Indication: DEEP VEIN THROMBOSIS
     Route: 058
     Dates: start: 20121025, end: 20121122
  2. INVESTIGATIONAL DRUG [Suspect]
     Indication: DIABETIC RETINAL OEDEMA
     Route: 031
     Dates: start: 20111201
  3. JANUVIA [Concomitant]
     Indication: DIABETES MELLITUS
     Route: 048
  4. LIPITOR [Concomitant]
     Indication: HYPERCHOLESTEROLAEMIA
     Route: 048
  5. LISINOPRIL [Concomitant]
     Indication: HYPERTENSION
     Route: 048
     Dates: start: 20050101, end: 20121030
  6. VIGRAN [Concomitant]
     Indication: VITAMIN SUPPLEMENTATION
     Dates: start: 19990101
  7. ASPIRIN [Concomitant]
     Indication: CARDIOVASCULAR EVENT PROPHYLAXIS
     Route: 048
     Dates: start: 2006, end: 20121030
  8. ASPIRIN [Concomitant]
     Indication: CARDIOVASCULAR EVENT PROPHYLAXIS
     Route: 048
     Dates: start: 20121030, end: 20121122
  9. OMEPRAZOLE [Concomitant]
     Indication: GASTROOESOPHAGEAL REFLUX DISEASE
     Route: 048
     Dates: start: 2009
  10. HYPROMELLOSE [Concomitant]
     Indication: DRY EYE
     Route: 061
     Dates: start: 20090125
  11. LUMIGAN [Concomitant]
     Indication: GLAUCOMA
     Route: 061
     Dates: start: 20090309
  12. AUGMENTIN [Concomitant]
     Indication: CHOLECYSTITIS
     Route: 048
     Dates: start: 20120523
  13. INSULIN [Concomitant]
     Indication: HYPERKALAEMIA
     Route: 042
     Dates: start: 20121025, end: 20121030
  14. DEXTROSE [Concomitant]
     Indication: HYPERKALAEMIA
     Route: 042
     Dates: start: 20121025, end: 20121030
  15. CALCIUM GLUCONATE [Concomitant]
     Indication: HYPERKALAEMIA
     Route: 042
     Dates: start: 20121025, end: 20121030
  16. KAYEXALATE [Concomitant]
     Indication: HYPERKALAEMIA
     Route: 048
     Dates: start: 20121025, end: 20121030
  17. IBUPROFEN [Concomitant]
     Indication: PAIN
     Route: 048
     Dates: start: 20121023, end: 20121023
  18. SENNA [Concomitant]
     Indication: CONSTIPATION
     Route: 048
     Dates: start: 20121025, end: 20121030
  19. COLACE [Concomitant]
     Indication: CONSTIPATION
     Route: 048
     Dates: start: 20121025, end: 20121030
  20. MACROBID [Concomitant]
     Indication: URINARY TRACT INFECTION
     Route: 048
     Dates: start: 20121025, end: 20121108
  21. METFORMIN [Concomitant]
     Indication: DIABETES MELLITUS
     Route: 048
     Dates: start: 20010101

REACTIONS (2)
  - Metabolic acidosis [Recovered/Resolved]
  - Anaemia [Not Recovered/Not Resolved]
